FAERS Safety Report 7989096-8 (Version None)
Quarter: 2011Q4

REPORT INFORMATION
  Report Type: 
  Country: None (occurrence: None)
  Receive Date: 20111007
  Receipt Date: 20110815
  Transmission Date: 20120403
  Serious: No
  Sender: FDA-Public Use
  Company Number: 2011HGS-002481

PATIENT
  Age: 44 Year
  Sex: Female
  Weight: 78.4723 kg

DRUGS (4)
  1. PLAQUENIL [Concomitant]
  2. BENLYSTA [Suspect]
     Indication: SYSTEMIC LUPUS ERYTHEMATOSUS
     Dosage: 1 IN 14 D, INTRAVENOUS DRIP
     Route: 041
     Dates: start: 20110812, end: 20110812
  3. PREDNISONE [Concomitant]
  4. LEXAPRO [Concomitant]

REACTIONS (5)
  - SWELLING [None]
  - OEDEMA PERIPHERAL [None]
  - ENERGY INCREASED [None]
  - MUSCULOSKELETAL STIFFNESS [None]
  - JOINT SWELLING [None]
